FAERS Safety Report 8140942-7 (Version None)
Quarter: 2012Q1

REPORT INFORMATION
  Report Type: 
  Country: None (occurrence: None)
  Receive Date: 20120216
  Receipt Date: 20120213
  Transmission Date: 20120608
  Serious: Yes (Hospitalization, Congenital Anomaly, Other)
  Sender: FDA-Public Use
  Company Number: US-PFIZER INC-2011288400

PATIENT
  Sex: Female
  Weight: 3 kg

DRUGS (4)
  1. ZOLOFT [Suspect]
     Indication: DEPRESSION
     Dosage: UNK
     Route: 064
     Dates: start: 20070101
  2. ZOLOFT [Suspect]
     Dosage: 150 MG, UNK
     Route: 064
  3. ZOLOFT [Suspect]
     Dosage: 50 MG, 1X/DAY EVERY MORNING
     Route: 064
     Dates: start: 20070914
  4. ZOLOFT [Suspect]
     Dosage: 100MG EVERY DAY
     Route: 064
     Dates: start: 20090611

REACTIONS (6)
  - PATENT DUCTUS ARTERIOSUS [None]
  - MATERNAL EXPOSURE TIMING UNSPECIFIED [None]
  - AORTIC DISORDER [None]
  - ATRIOVENTRICULAR SEPTAL DEFECT [None]
  - NEONATAL RESPIRATORY DISTRESS SYNDROME [None]
  - TRANSPOSITION OF THE GREAT VESSELS [None]
